FAERS Safety Report 9119349 (Version 1)
Quarter: 2013Q1

REPORT INFORMATION
  Report Type: Spontaneous
  Country: US (occurrence: US)
  Receive Date: 20130226
  Receipt Date: 20130226
  Transmission Date: 20140127
  Serious: No
  Sender: FDA-Public Use
  Company Number: US-PFIZER INC-2013065783

PATIENT
  Age: 55 Year
  Sex: Female

DRUGS (3)
  1. ERYTHROMYCIN [Suspect]
     Dosage: UNK
  2. DOXYCYCLINE [Suspect]
     Dosage: UNK
  3. PERCOCET [Suspect]
     Dosage: 5/325

REACTIONS (2)
  - Drug hypersensitivity [Unknown]
  - Abdominal discomfort [Unknown]
